FAERS Safety Report 6920641-7 (Version None)
Quarter: 2010Q3

REPORT INFORMATION
  Report Type: 
  Country: None (occurrence: None)
  Receive Date: 20100812
  Receipt Date: 20100806
  Transmission Date: 20110219
  Serious: Yes (Hospitalization)
  Sender: FDA-Public Use
  Company Number: JP-BAYER-201013665BYL

PATIENT
  Age: 79 Year
  Sex: Male

DRUGS (7)
  1. NEXAVAR [Suspect]
     Indication: HEPATIC NEOPLASM MALIGNANT
     Dosage: TOTAL DAILY DOSE: 400 MG  UNIT DOSE: 200 MG
     Route: 048
     Dates: start: 20100706, end: 20100717
  2. ZYLORIC [Concomitant]
     Dosage: UNIT DOSE: 100 MG
     Route: 048
     Dates: start: 20100518
  3. NU-LOTAN [Concomitant]
     Dosage: UNIT DOSE: 50 MG
     Route: 048
     Dates: end: 20100721
  4. NORVASC [Concomitant]
     Dosage: UNIT DOSE: 5 MG
     Route: 048
     Dates: end: 20100721
  5. URSO 250 [Concomitant]
     Dosage: UNIT DOSE: 100 MG
     Route: 048
  6. GLYCYRON [Concomitant]
     Route: 048
     Dates: end: 20100721
  7. GLAKAY [Concomitant]
     Dosage: UNIT DOSE: 15 MG
     Route: 048

REACTIONS (2)
  - DIABETES INSIPIDUS [None]
  - HYPERNATRAEMIA [None]
